FAERS Safety Report 24609189 (Version 3)
Quarter: 2025Q2

REPORT INFORMATION
  Report Type: Spontaneous
  Country: HU (occurrence: HU)
  Receive Date: 20241112
  Receipt Date: 20250613
  Transmission Date: 20250716
  Serious: Yes (Hospitalization, Other)
  Sender: PFIZER
  Company Number: HU-002147023-NVSC2024HU195745

PATIENT
  Age: 45 Year
  Sex: Male
  Weight: 88 kg

DRUGS (16)
  1. RITUXIMAB [Suspect]
     Active Substance: RITUXIMAB
     Indication: Plasma cell myeloma refractory
     Route: 042
     Dates: start: 20240924, end: 20240924
  2. RITUXIMAB [Suspect]
     Active Substance: RITUXIMAB
     Dosage: 375 MG/KG, 1X/DAY
     Route: 042
     Dates: start: 20241022
  3. LENALIDOMIDE [Suspect]
     Active Substance: LENALIDOMIDE
     Indication: Plasma cell myeloma refractory
     Dosage: 20 MG, 1X/DAY, QD (EVERYDAY)
     Route: 048
     Dates: start: 20240924, end: 20240930
  4. LENALIDOMIDE [Suspect]
     Active Substance: LENALIDOMIDE
     Dosage: 20 MG, 1X/DAY, QD
     Route: 048
     Dates: start: 20241022
  5. ACYCLOVIR [Concomitant]
     Active Substance: ACYCLOVIR
     Indication: Prophylaxis
     Route: 065
     Dates: start: 20240905
  6. ENOXAPARIN SODIUM [Concomitant]
     Active Substance: ENOXAPARIN SODIUM
     Indication: Thrombosis prophylaxis
     Route: 065
     Dates: start: 20240924, end: 20240927
  7. ENOXAPARIN SODIUM [Concomitant]
     Active Substance: ENOXAPARIN SODIUM
     Route: 065
     Dates: start: 20240928
  8. FASTURTEC [Concomitant]
     Active Substance: RASBURICASE
     Indication: Prophylaxis
     Route: 065
     Dates: start: 20240924, end: 20240924
  9. LENDIN [Concomitant]
     Indication: Prophylaxis
     Route: 065
     Dates: start: 20240924, end: 20241004
  10. METAMIZOLE SODIUM [Concomitant]
     Active Substance: METAMIZOLE SODIUM
     Indication: Prophylaxis
     Route: 065
     Dates: start: 20240924, end: 20240924
  11. ALLOPURINOL [Concomitant]
     Active Substance: ALLOPURINOL
     Indication: Prophylaxis
     Route: 065
     Dates: start: 20240924
  12. SOLU-MEDROL [Concomitant]
     Active Substance: METHYLPREDNISOLONE SODIUM SUCCINATE
     Indication: Prophylaxis
     Route: 065
     Dates: start: 20240924, end: 20240924
  13. SULFAMETHOXAZOLE\TRIMETHOPRIM [Concomitant]
     Active Substance: SULFAMETHOXAZOLE\TRIMETHOPRIM
     Indication: Prophylaxis
     Route: 065
     Dates: start: 20240924
  14. CHLOROPYRAMINE HYDROCHLORIDE [Concomitant]
     Active Substance: CHLOROPYRAMINE HYDROCHLORIDE
     Indication: Prophylaxis
     Route: 065
     Dates: start: 20240924, end: 20240924
  15. TRANEXAMIC ACID [Concomitant]
     Active Substance: TRANEXAMIC ACID
     Indication: Haemoptysis
     Route: 065
     Dates: start: 20240927, end: 20241004
  16. LEVOFLOXACIN [Concomitant]
     Active Substance: LEVOFLOXACIN
     Indication: Prophylaxis
     Route: 065
     Dates: start: 20240927

REACTIONS (3)
  - Pulmonary embolism [Not Recovered/Not Resolved]
  - COVID-19 pneumonia [Recovered/Resolved]
  - COVID-19 [Unknown]

NARRATIVE: CASE EVENT DATE: 20240927
